FAERS Safety Report 4411339-8 (Version None)
Quarter: 2004Q2

REPORT INFORMATION
  Report Type: 
  Country: None (occurrence: None)
  Receive Date: 20040630
  Receipt Date: 20040429
  Transmission Date: 20050107
  Serious: No
  Sender: FDA-Public Use
  Company Number: 04P-163-0259595-00

PATIENT
  Age: 56 Year
  Sex: Male

DRUGS (9)
  1. HUMIRA [Suspect]
     Indication: RHEUMATOID ARTHRITIS
     Dosage: 40 MG, 1 IN 2 WK, SUBCUTANEOUS
     Route: 058
     Dates: start: 20040301
  2. UNKNOWN ANTIBIOTIC [Concomitant]
  3. PREDNISONE [Concomitant]
  4. MELOXICAM [Concomitant]
  5. OMEPRAZOLE [Concomitant]
  6. ULTRACET [Concomitant]
  7. DOXYCYCLINE [Concomitant]
  8. PRAVASTATIN SODIUM [Concomitant]
  9. ZETIA [Concomitant]

REACTIONS (1)
  - ACNE [None]
